FAERS Safety Report 18208798 (Version 2)
Quarter: 2021Q2

REPORT INFORMATION
  Report Type: Spontaneous
  Country: US (occurrence: US)
  Receive Date: 20200828
  Receipt Date: 20210429
  Transmission Date: 20210717
  Serious: Yes (Other)
  Sender: FDA-Public Use
  Company Number: US-ASTRAZENECA-2020SF07423

PATIENT
  Age: 40 Year
  Sex: Male
  Weight: 117 kg

DRUGS (46)
  1. PRILOSEC OTC [Suspect]
     Active Substance: OMEPRAZOLE MAGNESIUM
     Indication: GASTROOESOPHAGEAL REFLUX DISEASE
     Route: 048
     Dates: start: 20100618
  2. TRAMADOL. [Concomitant]
     Active Substance: TRAMADOL
     Indication: PAIN
     Dates: start: 2010, end: 2014
  3. SERTRALINE HCL [Concomitant]
     Active Substance: SERTRALINE HYDROCHLORIDE
  4. MONTELUKAST [Concomitant]
     Active Substance: MONTELUKAST SODIUM
  5. NIASPAN [Concomitant]
     Active Substance: NIACIN
  6. DOCUSATE SODIUM. [Concomitant]
     Active Substance: DOCUSATE SODIUM
  7. METFORMIN [Concomitant]
     Active Substance: METFORMIN HYDROCHLORIDE
  8. ONDANSETRON [Concomitant]
     Active Substance: ONDANSETRON
  9. ATORVASTATIN [Concomitant]
     Active Substance: ATORVASTATIN
     Indication: BLOOD CHOLESTEROL INCREASED
     Dates: start: 2012, end: 2014
  10. FENOFIBRATE. [Concomitant]
     Active Substance: FENOFIBRATE
  11. DULERA [Concomitant]
     Active Substance: FORMOTEROL FUMARATE DIHYDRATE\MOMETASONE FUROATE
  12. TOPIRAMATE. [Concomitant]
     Active Substance: TOPIRAMATE
  13. ADVAIR HFA [Concomitant]
     Active Substance: FLUTICASONE PROPIONATE\SALMETEROL XINAFOATE
  14. HYDROCODON ACETAMINOPH [Concomitant]
  15. RANITIDINE. [Concomitant]
     Active Substance: RANITIDINE
  16. PRILOSEC OTC [Suspect]
     Active Substance: OMEPRAZOLE MAGNESIUM
     Indication: GASTROOESOPHAGEAL REFLUX DISEASE
     Route: 048
     Dates: start: 2008, end: 2018
  17. AMITRIPTYLINE [Concomitant]
     Active Substance: AMITRIPTYLINE
     Indication: PAIN
     Dates: start: 2010, end: 2013
  18. AMITRIPTYLINE HCL [Concomitant]
     Active Substance: AMITRIPTYLINE
  19. OMEPRAZOLE. [Suspect]
     Active Substance: OMEPRAZOLE
     Indication: GASTROOESOPHAGEAL REFLUX DISEASE
     Dosage: GENERIC
     Route: 065
     Dates: start: 20110705
  20. NAPROXEN. [Concomitant]
     Active Substance: NAPROXEN
     Indication: PAIN
     Dates: start: 2014, end: 2015
  21. NICOTINE. [Concomitant]
     Active Substance: NICOTINE
  22. PROPRANOLOL [Concomitant]
     Active Substance: PROPRANOLOL HYDROCHLORIDE
  23. PREDNISONE. [Concomitant]
     Active Substance: PREDNISONE
  24. OMEPRAZOLE. [Suspect]
     Active Substance: OMEPRAZOLE
     Indication: GASTROOESOPHAGEAL REFLUX DISEASE
     Dosage: GENERIC
     Route: 065
     Dates: start: 2011
  25. SUMATRIPTAN. [Concomitant]
     Active Substance: SUMATRIPTAN
  26. VENTOLIN [Concomitant]
     Active Substance: ALBUTEROL SULFATE
  27. IBUPROFEN. [Concomitant]
     Active Substance: IBUPROFEN
  28. PRILOSEC OTC [Suspect]
     Active Substance: OMEPRAZOLE MAGNESIUM
     Indication: GASTROOESOPHAGEAL REFLUX DISEASE
     Route: 048
     Dates: start: 201006, end: 201712
  29. HYDROCHLOROTHIAZIDE. [Concomitant]
     Active Substance: HYDROCHLOROTHIAZIDE
     Indication: OEDEMA
     Dates: start: 2011, end: 2013
  30. CEPHALEXIN. [Concomitant]
     Active Substance: CEPHALEXIN
  31. ASPIRIN. [Concomitant]
     Active Substance: ASPIRIN
  32. ALBUTEROL. [Concomitant]
     Active Substance: ALBUTEROL
  33. GEMFIBROZIL. [Concomitant]
     Active Substance: GEMFIBROZIL
  34. CYMBALTA [Concomitant]
     Active Substance: DULOXETINE HYDROCHLORIDE
  35. GABAPENTIN. [Concomitant]
     Active Substance: GABAPENTIN
  36. SERTRALINE [Concomitant]
     Active Substance: SERTRALINE HYDROCHLORIDE
  37. MELOXICAM. [Concomitant]
     Active Substance: MELOXICAM
  38. CETIRIZINE [Concomitant]
     Active Substance: CETIRIZINE HYDROCHLORIDE
  39. TRAMADOL HCL [Concomitant]
     Active Substance: TRAMADOL HYDROCHLORIDE
  40. AZITHROMYCIN ANHYDROUS. [Concomitant]
     Active Substance: AZITHROMYCIN ANHYDROUS
  41. CHLORHEXIDINE [Concomitant]
     Active Substance: CHLORHEXIDINE
  42. LORATADINE. [Concomitant]
     Active Substance: LORATADINE
  43. SULFAMETHOXAZOLE [Concomitant]
     Active Substance: SULFAMETHOXAZOLE
     Indication: INFECTION
     Dates: start: 2014
  44. OXAPROZIN. [Concomitant]
     Active Substance: OXAPROZIN
     Indication: PAIN
     Dates: start: 2017
  45. FAMOTIDINE. [Concomitant]
     Active Substance: FAMOTIDINE
     Dates: start: 2018
  46. BUDESONIDE. [Concomitant]
     Active Substance: BUDESONIDE

REACTIONS (2)
  - Chronic kidney disease [Not Recovered/Not Resolved]
  - Acute kidney injury [Not Recovered/Not Resolved]

NARRATIVE: CASE EVENT DATE: 2017
